FAERS Safety Report 23534259 (Version 1)
Quarter: 2024Q1

REPORT INFORMATION
  Report Type: Other
  Country: US (occurrence: None)
  Receive Date: 20240216
  Receipt Date: 20240216
  Transmission Date: 20240409
  Serious: Yes (Hospitalization)
  Sender: FDA-Public Use
  Company Number: US-ROCHE-3509951

PATIENT
  Age: 61 Year
  Sex: Male

DRUGS (8)
  1. OSELTAMIVIR [Suspect]
     Active Substance: OSELTAMIVIR
     Indication: H1N1 influenza
     Route: 065
  2. OBINUTUZUMAB [Concomitant]
     Active Substance: OBINUTUZUMAB
     Route: 042
  3. VENETOCLAX [Concomitant]
     Active Substance: VENETOCLAX
  4. REMDESIVIR [Concomitant]
     Active Substance: REMDESIVIR
  5. PAXLOVID [Concomitant]
     Active Substance: NIRMATRELVIR\RITONAVIR
  6. OLANZAPINE [Concomitant]
     Active Substance: OLANZAPINE
  7. BEBTELOVIMAB [Concomitant]
     Active Substance: BEBTELOVIMAB
  8. SEROQUEL [Concomitant]
     Active Substance: QUETIAPINE FUMARATE
     Dosage: 100-150?MG

REACTIONS (1)
  - Mania [Recovered/Resolved]
